FAERS Safety Report 9182555 (Version 1)
Quarter: 2013Q1

REPORT INFORMATION
  Report Type: Spontaneous
  Country: US (occurrence: US)
  Receive Date: 20130322
  Receipt Date: 20130322
  Transmission Date: 20140127
  Serious: Yes (Life-Threatening, Disabling)
  Sender: FDA-Public Use
  Company Number: US-BRISTOL-MYERS SQUIBB COMPANY-16824906

PATIENT
  Age: 68 Year
  Sex: Male

DRUGS (5)
  1. ERBITUX [Suspect]
     Indication: TONSIL CANCER
     Dosage: INF
     Route: 042
     Dates: start: 20120719, end: 20120719
  2. ASPIRIN [Concomitant]
  3. NIMESULIDE [Concomitant]
  4. DEXTRAN [Concomitant]
  5. INSULIN [Concomitant]

REACTIONS (1)
  - Anaphylactic shock [Recovered/Resolved]
